FAERS Safety Report 17189147 (Version 1)
Quarter: 2019Q4

REPORT INFORMATION
  Report Type: Spontaneous
  Country: FR (occurrence: FR)
  Receive Date: 20191223
  Receipt Date: 20191223
  Transmission Date: 20200122
  Serious: Yes (Disabling, Congenital Anomaly)
  Sender: FDA-Public Use
  Company Number: FR-ABBVIE-19K-056-3207376-00

PATIENT
  Age: 9 Month
  Sex: Male

DRUGS (2)
  1. FOLIC ACID. [Concomitant]
     Active Substance: FOLIC ACID
     Indication: MATERNAL EXPOSURE TIMING UNSPECIFIED
  2. DEPAKINE [Suspect]
     Active Substance: VALPROATE SODIUM
     Indication: MATERNAL EXPOSURE TIMING UNSPECIFIED
     Dosage: 1000 MG,QD
     Route: 064
     Dates: end: 19971107

REACTIONS (8)
  - Psychomotor retardation [Not Recovered/Not Resolved]
  - Encephalopathy [Unknown]
  - Cryptorchism [Not Recovered/Not Resolved]
  - Intellectual disability [Not Recovered/Not Resolved]
  - Hereditary disorder [Unknown]
  - Dysmorphism [Unknown]
  - Epilepsy [Unknown]
  - Foetal exposure during pregnancy [Unknown]

NARRATIVE: CASE EVENT DATE: 1998
